FAERS Safety Report 24949543 (Version 1)
Quarter: 2025Q1

REPORT INFORMATION
  Report Type: Spontaneous
  Country: FR (occurrence: FR)
  Receive Date: 20250210
  Receipt Date: 20250210
  Transmission Date: 20250408
  Serious: Yes (Hospitalization, Other)
  Sender: BRISTOL-MYERS SQUIBB COMPANY
  Company Number: None

PATIENT
  Age: 76 Year
  Sex: Male

DRUGS (2)
  1. YERVOY [Suspect]
     Active Substance: IPILIMUMAB
     Indication: Renal cancer metastatic
     Route: 042
     Dates: start: 20241104, end: 20241202
  2. OPDIVO [Suspect]
     Active Substance: NIVOLUMAB
     Indication: Renal cancer metastatic
     Route: 042
     Dates: start: 20241104, end: 20241202

REACTIONS (4)
  - Hypopituitarism [Not Recovered/Not Resolved]
  - Secondary hypogonadism [Not Recovered/Not Resolved]
  - Hyperadrenocorticism [Not Recovered/Not Resolved]
  - Off label use [Unknown]

NARRATIVE: CASE EVENT DATE: 20241220
